FAERS Safety Report 4960320-9 (Version None)
Quarter: 2006Q1

REPORT INFORMATION
  Report Type: 
  Country: None (occurrence: None)
  Receive Date: 20060328
  Receipt Date: 20060315
  Transmission Date: 20060701
  Serious: Yes (Other)
  Sender: FDA-Public Use
  Company Number: 2006037156

PATIENT
  Age: 67 Year
  Sex: Male

DRUGS (2)
  1. ZYVOX [Suspect]
     Indication: INTERVERTEBRAL DISCITIS
  2. ZYVOX [Suspect]
     Indication: SPONDYLITIS

REACTIONS (1)
  - POLYNEUROPATHY [None]
